FAERS Safety Report 8775732 (Version 2)
Quarter: 2012Q4

REPORT INFORMATION
  Report Type: 
  Country: US (occurrence: US)
  Receive Date: 20120910
  Receipt Date: 20120925
  Transmission Date: 20130627
  Serious: Yes (Hospitalization)
  Sender: FDA-Public Use
  Company Number: US-PFIZER INC-2012221443

PATIENT
  Age: 75 Year
  Sex: Male

DRUGS (3)
  1. LIPITOR [Suspect]
     Indication: BLOOD CHOLESTEROL INCREASED
     Dosage: 40 mg, 1x/day
     Route: 048
  2. LIPITOR [Suspect]
     Dosage: UNK
     Route: 048
  3. COUMADIN [Concomitant]
     Dosage: UNK

REACTIONS (1)
  - Haemorrhage [Unknown]
